FAERS Safety Report 8280805-X (Version None)
Quarter: 2012Q2

REPORT INFORMATION
  Report Type: 
  Country: None (occurrence: None)
  Receive Date: 20120412
  Receipt Date: 20120403
  Transmission Date: 20120825
  Serious: Yes (Hospitalization)
  Sender: FDA-Public Use
  Company Number: KR-ABBOTT-12P-090-0921496-00

PATIENT
  Sex: Female
  Weight: 42 kg

DRUGS (7)
  1. HUMIRA [Suspect]
     Indication: CROHN'S DISEASE
     Dosage: INDUCTION
     Dates: start: 20110520
  2. HUMIRA [Suspect]
     Dates: start: 20110616
  3. PENTASA SR [Concomitant]
     Indication: CROHN'S DISEASE
     Dosage: 4000MG DAILY
     Route: 048
     Dates: start: 20110504
  4. NISOLONE [Concomitant]
     Route: 048
     Dates: start: 20110603, end: 20110616
  5. HUMIRA [Suspect]
     Dates: end: 20110602
  6. NISOLONE [Concomitant]
     Indication: CROHN'S DISEASE
     Dosage: 10 MG DAILY
     Route: 048
     Dates: start: 20110426, end: 20110602
  7. FAMOTIDINE [Concomitant]
     Indication: GASTROINTESTINAL DISORDER
     Dosage: 40 MG DAILY
     Route: 048
     Dates: start: 20110411, end: 20110602

REACTIONS (1)
  - ENTEROCUTANEOUS FISTULA [None]
